FAERS Safety Report 22400220 (Version 1)
Quarter: 2023Q2

REPORT INFORMATION
  Report Type: Spontaneous
  Country: JP (occurrence: JP)
  Receive Date: 20230602
  Receipt Date: 20230602
  Transmission Date: 20230721
  Serious: Yes (Other)
  Sender: FDA-Public Use
  Company Number: JP-SUN PHARMACEUTICAL INDUSTRIES LTD-2023RR-391960

PATIENT
  Age: 68 Year
  Sex: Male

DRUGS (6)
  1. ARIPIPRAZOLE [Suspect]
     Active Substance: ARIPIPRAZOLE
     Indication: Antipsychotic therapy
     Dosage: UNK
     Route: 065
  2. RISPERIDONE [Suspect]
     Active Substance: RISPERIDONE
     Indication: Antipsychotic therapy
     Dosage: 1 MILLIGRAM
     Route: 065
  3. QUETIAPINE [Suspect]
     Active Substance: QUETIAPINE
     Indication: Antipsychotic therapy
     Dosage: 50 MILLIGRAM
     Route: 065
  4. QUETIAPINE [Suspect]
     Active Substance: QUETIAPINE
     Dosage: 600 MILLIGRAM
     Route: 065
  5. OLANZAPINE [Suspect]
     Active Substance: OLANZAPINE
     Indication: Antipsychotic therapy
     Dosage: 20 MILLIGRAM
     Route: 065
  6. SULPIRIDE [Suspect]
     Active Substance: SULPIRIDE
     Indication: Antipsychotic therapy
     Dosage: 300 MILLIGRAM
     Route: 065

REACTIONS (7)
  - Parkinsonism [Unknown]
  - Disease recurrence [Unknown]
  - Treatment failure [Unknown]
  - Drug ineffective [Unknown]
  - Extrapyramidal disorder [Unknown]
  - Drug resistance [Unknown]
  - Condition aggravated [Unknown]
